APPROVED DRUG PRODUCT: SODIUM FLUORIDE F-18
Active Ingredient: SODIUM FLUORIDE F-18
Strength: 10-200mCi/ML
Dosage Form/Route: INJECTABLE;INTRAVENOUS
Application: A204462 | Product #001
Applicant: UNIV IOWA HOSPS AND CLINICS PET IMAGING CENTER
Approved: Nov 17, 2015 | RLD: No | RS: No | Type: DISCN